FAERS Safety Report 4280189-8 (Version None)
Quarter: 2004Q1

REPORT INFORMATION
  Report Type: 
  Country: None (occurrence: None)
  Receive Date: 20040128
  Receipt Date: 20040115
  Transmission Date: 20041129
  Serious: Yes (Hospitalization)
  Sender: FDA-Public Use
  Company Number: FR-GLAXOSMITHKLINE-B0319854A

PATIENT
  Age: 77 Year
  Sex: Female

DRUGS (13)
  1. ZOPHREN [Suspect]
     Indication: PROPHYLAXIS OF NAUSEA AND VOMITING
     Dosage: 8MG PER DAY
     Route: 042
     Dates: start: 20031115, end: 20031115
  2. TEGELINE [Suspect]
     Route: 042
     Dates: start: 20031103, end: 20031107
  3. ONCOVIN [Suspect]
     Dosage: 2MG PER DAY
     Route: 042
     Dates: start: 20031115, end: 20031115
  4. VICTAN [Suspect]
     Dosage: 2MG PER DAY
     Route: 048
     Dates: end: 20031105
  5. DIFFU-K [Suspect]
     Dosage: 2UNIT PER DAY
     Route: 048
     Dates: end: 20031118
  6. CORTANCYL [Suspect]
     Indication: IDIOPATHIC THROMBOCYTOPENIC PURPURA
     Route: 048
     Dates: end: 20031114
  7. STABLON [Concomitant]
     Indication: BIPOLAR I DISORDER
     Route: 048
  8. DEPAMIDE [Concomitant]
     Indication: BIPOLAR I DISORDER
     Route: 048
  9. LASILIX [Concomitant]
     Indication: ESSENTIAL HYPERTENSION
     Dosage: 40MG UNKNOWN
     Route: 048
  10. ISOPTIN [Concomitant]
     Indication: ESSENTIAL HYPERTENSION
     Route: 048
  11. NITRIDERM [Concomitant]
     Route: 062
     Dates: start: 20031117
  12. NOROXIN [Concomitant]
     Indication: CYSTITIS
     Route: 048
     Dates: start: 20031105, end: 20031118
  13. PERFALGAN [Concomitant]
     Route: 042
     Dates: start: 20031118, end: 20031127

REACTIONS (7)
  - ACUTE PULMONARY OEDEMA [None]
  - DYSPNOEA [None]
  - HAEMORRHAGE [None]
  - LUNG DISORDER [None]
  - MYALGIA [None]
  - PAINFUL RESPIRATION [None]
  - PARAESTHESIA [None]
